FAERS Safety Report 7044731-6 (Version None)
Quarter: 2010Q4

REPORT INFORMATION
  Report Type: 
  Country: None (occurrence: None)
  Receive Date: 20101014
  Receipt Date: 20100927
  Transmission Date: 20110411
  Serious: Yes (Disabling)
  Sender: FDA-Public Use
  Company Number: DE-SANOFI-AVENTIS-2010SA057944

PATIENT
  Age: 75 Year
  Sex: Female
  Weight: 72 kg

DRUGS (5)
  1. MULTAQ [Suspect]
     Indication: ATRIAL FIBRILLATION
     Route: 048
     Dates: start: 20100828, end: 20100918
  2. METOPROLOL SUCCINATE [Concomitant]
     Indication: ATRIAL FIBRILLATION
     Route: 048
     Dates: start: 20080101
  3. DELIX [Concomitant]
     Dosage: DOSAGE: 1-0-1/2
     Route: 048
     Dates: start: 20050101
  4. PRAVASTATIN SODIUM [Concomitant]
     Route: 048
     Dates: start: 20050101
  5. MARCUMAR [Concomitant]
     Indication: ATRIAL FIBRILLATION
     Route: 048
     Dates: start: 20100828

REACTIONS (2)
  - OSCILLOPSIA [None]
  - VISUAL IMPAIRMENT [None]
